FAERS Safety Report 23105619 (Version 1)
Quarter: 2023Q4

REPORT INFORMATION
  Report Type: Spontaneous
  Country: US (occurrence: None)
  Receive Date: 20231023
  Receipt Date: 20231023
  Transmission Date: 20240110
  Serious: Yes (Hospitalization)
  Sender: FDA-Public Use
  Company Number: None

PATIENT
  Age: 69 Year
  Sex: Male
  Weight: 88.4 kg

DRUGS (1)
  1. PHENYTOIN SODIUM, EXTENDED [Suspect]
     Active Substance: PHENYTOIN SODIUM, EXTENDED
     Dosage: FREQUENCY : AT BEDTIME;?
     Route: 048
     Dates: start: 20201024

REACTIONS (7)
  - Confusional state [None]
  - Sedation [None]
  - Urinary tract infection [None]
  - Drug level increased [None]
  - Toxicity to various agents [None]
  - Therapy cessation [None]
  - Anticoagulation drug level above therapeutic [None]

NARRATIVE: CASE EVENT DATE: 20230210
